FAERS Safety Report 13520792 (Version 1)
Quarter: 2017Q2

REPORT INFORMATION
  Report Type: Spontaneous
  Country: US (occurrence: US)
  Receive Date: 20170508
  Receipt Date: 20170508
  Transmission Date: 20170830
  Serious: No
  Sender: FDA-Public Use
  Company Number: US-ASTRAZENECA-2017SE45036

PATIENT
  Sex: Female

DRUGS (1)
  1. FASLODEX [Suspect]
     Active Substance: FULVESTRANT
     Indication: BREAST CANCER METASTATIC
     Route: 030

REACTIONS (6)
  - Paraesthesia oral [Unknown]
  - Erythema [Unknown]
  - Wheezing [Unknown]
  - Swelling face [Unknown]
  - Hypersensitivity [Unknown]
  - Dyspnoea [Unknown]
